FAERS Safety Report 16159852 (Version 2)
Quarter: 2019Q2

REPORT INFORMATION
  Report Type: Spontaneous
  Country: US (occurrence: US)
  Receive Date: 20190404
  Receipt Date: 20190405
  Transmission Date: 20190711
  Serious: Yes (Other)
  Sender: FDA-Public Use
  Company Number: US-PFIZER INC-2019135480

PATIENT
  Age: 82 Year
  Sex: Female
  Weight: 61.69 kg

DRUGS (3)
  1. LYRICA [Suspect]
     Active Substance: PREGABALIN
     Indication: NEURALGIA
     Dosage: 100 MG, ONCE DAILY (IN EVENING AT BEDTIME)
     Route: 048
     Dates: start: 2017
  2. LYRICA [Suspect]
     Active Substance: PREGABALIN
     Dosage: UNK, HIGHER DOSES
     Dates: start: 2018
  3. LYRICA [Suspect]
     Active Substance: PREGABALIN
     Dosage: 100 MG, ONCE A DAY (AT NIGHT)

REACTIONS (5)
  - Mental impairment [Unknown]
  - Pain [Unknown]
  - Memory impairment [Unknown]
  - Intentional product misuse [Unknown]
  - Insomnia [Unknown]

NARRATIVE: CASE EVENT DATE: 2017
